FAERS Safety Report 8470396-2 (Version None)
Quarter: 2012Q2

REPORT INFORMATION
  Report Type: 
  Country: None (occurrence: None)
  Receive Date: 20120627
  Receipt Date: 20120619
  Transmission Date: 20120825
  Serious: Yes (Hospitalization)
  Sender: FDA-Public Use
  Company Number: US-BAYER-2012-015835

PATIENT
  Age: 32 Year
  Sex: Female
  Weight: 70.295 kg

DRUGS (19)
  1. YAZ [Suspect]
     Indication: CONTRACEPTION
     Dosage: UNK
     Dates: start: 20010801, end: 20090101
  2. YAZ [Suspect]
     Indication: PREMENSTRUAL SYNDROME
  3. AMBIEN [Concomitant]
     Dosage: 5 MG, UNK
  4. BIAXIN [Concomitant]
     Dosage: 500 MG, UNK
  5. AMOXICILLIN [Concomitant]
     Dosage: 500 MG, UNK
  6. CHLORHEXIDINE GLUCONATE [Concomitant]
     Dosage: 0.12 %, UNK
  7. YAZ [Suspect]
  8. OMEPRAZOLE [Concomitant]
     Dosage: 20 MG, UNK
  9. YASMIN [Suspect]
     Indication: ACNE
  10. YASMIN [Suspect]
  11. YAZ [Suspect]
     Indication: ACNE
  12. ZYRTEC [Concomitant]
     Dosage: 10 MG, UNK
  13. DICYCLOMINE [Concomitant]
     Dosage: 10 MG, UNK
  14. PREVACID [Concomitant]
     Dosage: 30 MG, UNK
  15. CLARITIN [Concomitant]
  16. YASMIN [Suspect]
     Indication: CONTRACEPTION
     Dosage: UNK
     Dates: start: 20010801, end: 20090101
  17. YASMIN [Suspect]
     Indication: PREMENSTRUAL SYNDROME
  18. LEVSINEX [Concomitant]
     Dosage: 0.375 MG, UNK
  19. ZOLOFT [Concomitant]
     Dosage: 50 MG, UNK

REACTIONS (4)
  - CHOLECYSTITIS [None]
  - PAIN [None]
  - MENTAL DISORDER [None]
  - GALLBLADDER DISORDER [None]
